FAERS Safety Report 12192234 (Version 2)
Quarter: 2016Q2

REPORT INFORMATION
  Report Type: Spontaneous
  Country: JP (occurrence: JP)
  Receive Date: 20160318
  Receipt Date: 20160412
  Transmission Date: 20160815
  Serious: Yes (Hospitalization)
  Sender: FDA-Public Use
  Company Number: JP-TEVA-644228ISR

PATIENT
  Age: 70 Year
  Sex: Male

DRUGS (6)
  1. BISOPROLOL FUMARATE. [Concomitant]
     Active Substance: BISOPROLOL FUMARATE
  2. SENNA LEAF POWDER [Concomitant]
     Active Substance: SENNA LEAF
  3. KALLIDINOGENASE [Concomitant]
     Active Substance: KALLIDINOGENASE
  4. CAMOSTAT MESILATE [Suspect]
     Active Substance: CAMOSTAT MESYLATE
  5. BENZBROMARONE [Suspect]
     Active Substance: BENZBROMARONE
     Dates: start: 201203
  6. OMEPRAZOLE. [Concomitant]
     Active Substance: OMEPRAZOLE

REACTIONS (2)
  - Drug-induced liver injury [Recovered/Resolved]
  - Autoimmune hepatitis [Recovered/Resolved]
